FAERS Safety Report 7737064-3 (Version None)
Quarter: 2011Q3

REPORT INFORMATION
  Report Type: 
  Country: None (occurrence: None)
  Receive Date: 20110902
  Receipt Date: 20110822
  Transmission Date: 20111222
  Serious: Yes (Other)
  Sender: FDA-Public Use
  Company Number: 2011MA012389

PATIENT
  Age: 56 Year
  Sex: Male
  Weight: 99.3377 kg

DRUGS (5)
  1. LIDOCAINE [Suspect]
     Indication: INTERVERTEBRAL DISC PROTRUSION
     Dosage: 2 ML 1%;X1;ED
     Route: 008
  2. ZALEPLON [Concomitant]
  3. AMITRIPTYLINE HCL [Concomitant]
  4. TRIAMCINOLONE ACETONIDE [Suspect]
     Indication: INTERVERTEBRAL DISC PROTRUSION
     Dosage: 40 MG/ML 2 ML;X1;ED
     Route: 008
  5. SALINE CHLORIDE [Suspect]
     Indication: INTERVERTEBRAL DISC PROTRUSION
     Dosage: 5 ML;X1;ED
     Route: 008

REACTIONS (3)
  - NERVE ROOT COMPRESSION [None]
  - SPINAL CLAUDICATION [None]
  - EPIDURAL LIPOMATOSIS [None]
